FAERS Safety Report 6469151-4 (Version None)
Quarter: 2009Q4

REPORT INFORMATION
  Report Type: 
  Country: None (occurrence: None)
  Receive Date: 20091203
  Receipt Date: 20080201
  Transmission Date: 20100525
  Serious: Yes (Hospitalization, Other)
  Sender: FDA-Public Use
  Company Number: US-ELI_LILLY_AND_COMPANY-US200702004426

PATIENT
  Sex: Female
  Weight: 49.887 kg

DRUGS (15)
  1. FORTEO [Suspect]
     Indication: SPINAL COLUMN INJURY
     Dosage: UNK D/F, UNKNOWN
     Dates: start: 20051201
  2. CALCIUM [Concomitant]
  3. THYROID TAB [Concomitant]
  4. VICODIN [Concomitant]
  5. DIGOXIN [Concomitant]
     Indication: CARDIAC DISORDER
     Dosage: 0.125 MG, DAILY (1/D)
  6. LORAZEPAM [Concomitant]
     Indication: PRURITUS
     Dosage: 1 MG, 2/D
  7. LEVOXYL [Concomitant]
     Indication: THYROID DISORDER
     Dosage: 50 MG, DAILY (1/D)
  8. PROTONIX [Concomitant]
     Indication: GASTROOESOPHAGEAL REFLUX DISEASE
     Dosage: 40 MG, DAILY (1/D)
  9. ACIPHEX [Concomitant]
     Dates: start: 20070501
  10. LORATADINE [Concomitant]
     Dates: start: 20070501
  11. SYNTHROID [Concomitant]
     Dosage: 75 UG, DAILY (1/D)
     Dates: start: 20070701
  12. OSCAL [Concomitant]
     Dosage: UNK, 2/D
  13. NEXIUM [Concomitant]
     Dosage: 40 MG, DAILY (1/D)
     Dates: start: 20070701
  14. ADVAIR DISKUS 100/50 [Concomitant]
     Dosage: UNK, 2/D
     Dates: start: 20070701
  15. DYAZIDE [Concomitant]
     Dosage: 37.5-25

REACTIONS (41)
  - ABDOMINAL DISTENSION [None]
  - ABDOMINAL PAIN [None]
  - ARTHRALGIA [None]
  - ARTHRITIS BACTERIAL [None]
  - ASCITES [None]
  - ASTHENIA [None]
  - ASTHMA [None]
  - BASAL CELL CARCINOMA [None]
  - BRONCHITIS [None]
  - CONSTIPATION [None]
  - DEPRESSION [None]
  - DEVICE RELATED INFECTION [None]
  - DIARRHOEA [None]
  - ELECTROLYTE IMBALANCE [None]
  - EXFOLIATIVE RASH [None]
  - EYE OPERATION COMPLICATION [None]
  - FALL [None]
  - GAIT DISTURBANCE [None]
  - GENERALISED OEDEMA [None]
  - HEPATIC FAILURE [None]
  - HEPATIC NEOPLASM MALIGNANT [None]
  - HEPATITIS C [None]
  - HIP FRACTURE [None]
  - HYPERTENSION [None]
  - HYPOTHYROIDISM [None]
  - IMPAIRED HEALING [None]
  - INAPPROPRIATE ANTIDIURETIC HORMONE SECRETION [None]
  - OSTEOARTHRITIS [None]
  - PAIN [None]
  - PAIN IN EXTREMITY [None]
  - PERITONITIS BACTERIAL [None]
  - POST PROCEDURAL INFECTION [None]
  - PRODUCTIVE COUGH [None]
  - RHINITIS ALLERGIC [None]
  - SINUS DISORDER [None]
  - SPUTUM DISCOLOURED [None]
  - STAPHYLOCOCCAL INFECTION [None]
  - SUPRAVENTRICULAR EXTRASYSTOLES [None]
  - SYSTEMIC CANDIDA [None]
  - THROMBOCYTOPENIA [None]
  - URINARY RETENTION POSTOPERATIVE [None]
